FAERS Safety Report 18533898 (Version 1)
Quarter: 2020Q4

REPORT INFORMATION
  Report Type: Other
  Country: DE (occurrence: DE)
  Receive Date: 20201123
  Receipt Date: 20201123
  Transmission Date: 20210114
  Serious: Yes (Life-Threatening)
  Sender: FDA-Public Use
  Company Number: DE-ROCHE-2718451

PATIENT

DRUGS (15)
  1. SULFAMETHOXAZOLE/TRIMETHOPRIM [Suspect]
     Active Substance: SULFAMETHOXAZOLE\TRIMETHOPRIM
     Indication: PROPHYLAXIS
     Dosage: AT EACH CYCLE
     Route: 065
  2. G-CSF [Suspect]
     Active Substance: GRANULOCYTE COLONY-STIMULATING FACTOR NOS
     Indication: PROPHYLAXIS
     Dosage: AT EACH CYCLE
     Route: 065
  3. ARA-C [Suspect]
     Active Substance: CYTARABINE
     Indication: CENTRAL NERVOUS SYSTEM LYMPHOMA
     Dosage: 10 MG, CYCLE 5 (1 CYCLE = 2 WEEKS), DAY 5
     Route: 065
  4. IFOSFAMIDE. [Suspect]
     Active Substance: IFOSFAMIDE
     Indication: CENTRAL NERVOUS SYSTEM LYMPHOMA
     Dosage: 800 MG/M2, CYCLE 1-3 (1 CYCLE = 2 WEEKS), DAY 2-4
     Route: 042
  5. PREDNISOLONE. [Suspect]
     Active Substance: PREDNISOLONE
     Indication: CENTRAL NERVOUS SYSTEM LYMPHOMA
     Dosage: 3 MG ICV, CYCLE 5 (1 CYCLE = 2 WEEKS), DAY 2-4 (WITH MTX)
     Route: 065
  6. PREDNISOLONE. [Suspect]
     Active Substance: PREDNISOLONE
     Dosage: 3 MG ICV, CYCLE 4 AND 6 (1 CYCLE = 3WEEKS), DAY 3-5 (WITH MTX)
     Route: 065
  7. ARA-C [Suspect]
     Active Substance: CYTARABINE
     Dosage: 10 MG, CYCLE 4 AND 6 (1 CYCLE = 3WEEKS), DAY 6
     Route: 065
  8. ARA-C [Suspect]
     Active Substance: CYTARABINE
     Dosage: 3000 MG/M2, CYCLE 4 AND 6 (1 CYCLE = 3WEEKS), DAY 1-2
     Route: 042
  9. ACICLOVIR [Suspect]
     Active Substance: ACYCLOVIR
     Indication: PROPHYLAXIS
     Dosage: AT EACH CYCLE
     Route: 065
  10. METHOTREXATE. [Suspect]
     Active Substance: METHOTREXATE
     Indication: CENTRAL NERVOUS SYSTEM LYMPHOMA
     Dosage: 2.5 MILLIGRAM, CYCLE 4 AND 6 (1 CYCLE = 3WEEKS), DAY 3-5 (WITH PREDNISOLONE)
     Route: 065
  11. METHOTREXATE. [Suspect]
     Active Substance: METHOTREXATE
     Dosage: 4000 MG/M2, CYCLE 5 (1 CYCLE = 2 WEEKS), DAY 1
     Route: 042
  12. METHOTREXATE. [Suspect]
     Active Substance: METHOTREXATE
     Dosage: 2.5 MILLIGRAM, CYCLE 5 (1 CYCLE = 2 WEEKS), DAY 2-4 (WITH PREDNISOLONE)
     Route: 065
  13. IFOSFAMIDE. [Suspect]
     Active Substance: IFOSFAMIDE
     Dosage: 800 MG/M2, CYCLE 5 (1 CYCLE = 2 WEEKS), DAY 2-4
     Route: 042
  14. RITUXIMAB. [Suspect]
     Active Substance: RITUXIMAB
     Indication: CENTRAL NERVOUS SYSTEM LYMPHOMA
     Dosage: 375 MG/M2, CYCLE 1-3 (1 CYCLE = 2 WEEKS), DAY 0
     Route: 041
  15. METHOTREXATE. [Suspect]
     Active Substance: METHOTREXATE
     Dosage: 4000 MG/M2, CYCLE 1-3 (1 CYCLE = 2 WEEKS), DAY 1
     Route: 042

REACTIONS (1)
  - Mucosal inflammation [Unknown]
